FAERS Safety Report 6372547-2 (Version None)
Quarter: 2009Q3

REPORT INFORMATION
  Report Type: 
  Country: None (occurrence: None)
  Receive Date: 20090924
  Receipt Date: 20080919
  Transmission Date: 20100115
  Serious: No
  Sender: FDA-Public Use
  Company Number: US-ASTRAZENECA-2008UW19611

PATIENT

DRUGS (1)
  1. SEROQUEL [Suspect]
     Route: 048
     Dates: start: 20080917

REACTIONS (2)
  - ACCIDENTAL EXPOSURE [None]
  - SOMNOLENCE [None]
